FAERS Safety Report 23934650 (Version 1)
Quarter: 2024Q2

REPORT INFORMATION
  Report Type: Spontaneous
  Country: MA (occurrence: MA)
  Receive Date: 20240603
  Receipt Date: 20240603
  Transmission Date: 20240716
  Serious: Yes (Other)
  Sender: FDA-Public Use
  Company Number: MA-009507513-2405MAR009739

PATIENT
  Age: 3 Year
  Sex: Male

DRUGS (2)
  1. IMIPENEM AND CILASTATIN [Suspect]
     Active Substance: CILASTATIN SODIUM\IMIPENEM
     Indication: Salmonella sepsis
     Dosage: UNK
  2. AMIKACIN [Suspect]
     Active Substance: AMIKACIN
     Indication: Salmonella sepsis

REACTIONS (2)
  - Pathogen resistance [Unknown]
  - Drug ineffective [Unknown]
